FAERS Safety Report 10243447 (Version 1)
Quarter: 2014Q2

REPORT INFORMATION
  Report Type: Spontaneous
  Country: FR (occurrence: FR)
  Receive Date: 20140618
  Receipt Date: 20140618
  Transmission Date: 20141212
  Serious: Yes (Hospitalization)
  Sender: FDA-Public Use
  Company Number: FR-ASTRAZENECA-2014SE44216

PATIENT
  Age: 931 Month
  Sex: Female

DRUGS (5)
  1. TENORETIC [Suspect]
     Dosage: 1 DF EVERY DAY
     Route: 048
     Dates: end: 20140514
  2. DEROXAT [Suspect]
     Route: 048
     Dates: start: 201403, end: 201404
  3. CYMBALTA [Suspect]
     Indication: DEPRESSION
     Route: 048
     Dates: start: 201405, end: 20140514
  4. STABLON [Suspect]
     Indication: DEPRESSION
     Route: 048
     Dates: start: 201402
  5. LYSANXIA [Suspect]
     Indication: DEPRESSION
     Route: 048
     Dates: start: 201402

REACTIONS (1)
  - Hyponatraemia [Recovering/Resolving]
